FAERS Safety Report 17662789 (Version 2)
Quarter: 2020Q2

REPORT INFORMATION
  Report Type: Spontaneous
  Country: US (occurrence: US)
  Receive Date: 20200413
  Receipt Date: 20200430
  Transmission Date: 20200713
  Serious: Yes (Other)
  Sender: FDA-Public Use
  Company Number: US-TEVA-2020-US-1221953

PATIENT
  Age: 57 Year
  Sex: Female

DRUGS (1)
  1. TRAZODONE HYDROCHLORIDE. [Suspect]
     Active Substance: TRAZODONE HYDROCHLORIDE
     Dosage: UNKNOWN STRENGTH, FOR APPROXIMATELY 10 DAYS TO 2 WEEKS
     Route: 065
     Dates: start: 202001

REACTIONS (5)
  - Blister [Not Recovered/Not Resolved]
  - Ankle fracture [Unknown]
  - Rash [Unknown]
  - Pain in extremity [Not Recovered/Not Resolved]
  - Cervical vertebral fracture [Unknown]

NARRATIVE: CASE EVENT DATE: 202004
